FAERS Safety Report 4914793-8 (Version None)
Quarter: 2006Q1

REPORT INFORMATION
  Report Type: 
  Country: None (occurrence: None)
  Receive Date: 20060113
  Receipt Date: 20051021
  Transmission Date: 20060701
  Serious: No
  Sender: FDA-Public Use
  Company Number: 2005SP003618

PATIENT
  Age: 40 Year
  Sex: Male

DRUGS (11)
  1. LUNESTA [Suspect]
     Dosage: SEE IMAGE
     Route: 048
     Dates: start: 20050101, end: 20050101
  2. LUNESTA [Suspect]
     Dosage: SEE IMAGE
     Route: 048
     Dates: start: 20050701, end: 20050101
  3. LUNESTA [Suspect]
     Dosage: SEE IMAGE
     Route: 048
     Dates: start: 20050101
  4. SEROQUEL [Concomitant]
  5. VALIUM [Concomitant]
  6. LAMOTRIGINE [Concomitant]
  7. NAPROXEN [Concomitant]
  8. ZANAFLEX [Concomitant]
  9. OXYCODONE [Concomitant]
  10. OXYCONTIN [Concomitant]
  11. RITALIN [Concomitant]

REACTIONS (3)
  - DRUG INEFFECTIVE [None]
  - INSOMNIA [None]
  - IRRITABILITY [None]
